FAERS Safety Report 12610495 (Version 1)
Quarter: 2016Q3

REPORT INFORMATION
  Report Type: Spontaneous
  Country: US (occurrence: US)
  Receive Date: 20160801
  Receipt Date: 20160801
  Transmission Date: 20161109
  Serious: Yes (Hospitalization, Other)
  Sender: FDA-Public Use
  Company Number: US-AMGEN-USASP2016097850

PATIENT
  Age: 55 Year
  Sex: Male

DRUGS (6)
  1. HYDROXYDAUNORUBICIN [Concomitant]
     Active Substance: DOXORUBICIN
     Dosage: 10 MG/M2, PER DAY FOR 3 DAYS
     Route: 065
  2. ONCOVIN [Concomitant]
     Active Substance: VINCRISTINE SULFATE
     Dosage: 0.4 MG/M2, PER DAY FOR 3 DAYS
     Route: 065
  3. ETOPOSIDE. [Concomitant]
     Active Substance: ETOPOSIDE
     Dosage: 50 MG/M2, PER DAY FOR 3 DAYS
     Route: 065
  4. CYCLOPHOSPHAMIDE. [Concomitant]
     Active Substance: CYCLOPHOSPHAMIDE
     Dosage: UNK
  5. PREDNISOLONE. [Concomitant]
     Active Substance: PREDNISOLONE
     Dosage: UNK
  6. NEULASTA [Suspect]
     Active Substance: PEGFILGRASTIM
     Indication: PRODUCT USED FOR UNKNOWN INDICATION
     Dosage: 6 MG, UNK
     Route: 065

REACTIONS (2)
  - Sepsis [Unknown]
  - Neutropenia [Unknown]
